FAERS Safety Report 6821679-0 (Version None)
Quarter: 2010Q3

REPORT INFORMATION
  Report Type: 
  Country: None (occurrence: None)
  Receive Date: 20100707
  Receipt Date: 20090314
  Transmission Date: 20110219
  Serious: No
  Sender: FDA-Public Use
  Company Number: US-PFIZER INC-2009165858

PATIENT
  Sex: Female

DRUGS (3)
  1. SERTRALINE HCL [Suspect]
     Indication: ANXIETY
     Dosage: 100 MG, 1X/DAY
     Route: 048
  2. AUGMENTIN '125' [Interacting]
     Indication: SINUSITIS
     Dosage: 875 MG, 2X/DAY
     Dates: start: 20090122, end: 20090125
  3. AUGMENTIN '125' [Interacting]
     Indication: BRONCHITIS

REACTIONS (4)
  - ANXIETY [None]
  - DRUG INTERACTION [None]
  - IMPAIRED DRIVING ABILITY [None]
  - PANIC REACTION [None]
